FAERS Safety Report 8568541-3 (Version None)
Quarter: 2012Q3

REPORT INFORMATION
  Report Type: 
  Country: None (occurrence: None)
  Receive Date: 20120803
  Receipt Date: 20120112
  Transmission Date: 20120928
  Serious: No
  Sender: FDA-Public Use
  Company Number: US-ABBOTT-12P-163-0892872-00

PATIENT
  Sex: Male
  Weight: 106.69 kg

DRUGS (6)
  1. NIASPAN [Suspect]
     Indication: BLOOD TEST ABNORMAL
  2. NIASPAN [Suspect]
     Dosage: 3000 MG DAILY FOR 6 MONTHS
  3. NIASPAN [Suspect]
     Dosage: IN THE MORNING
  4. SIMVASTATIN [Concomitant]
     Indication: PRODUCT USED FOR UNKNOWN INDICATION
  5. METFORMIN HYDROCHLORIDE [Concomitant]
     Indication: PRODUCT USED FOR UNKNOWN INDICATION
  6. LISINOPRIL [Concomitant]
     Indication: PRODUCT USED FOR UNKNOWN INDICATION

REACTIONS (3)
  - FLUSHING [None]
  - ERYTHEMA [None]
  - PRURITUS [None]
